FAERS Safety Report 6902392-8 (Version None)
Quarter: 2010Q3

REPORT INFORMATION
  Report Type: 
  Country: None (occurrence: None)
  Receive Date: 20100803
  Receipt Date: 20080516
  Transmission Date: 20110219
  Serious: No
  Sender: FDA-Public Use
  Company Number: US-PFIZER INC-2008034553

PATIENT
  Age: 29 Year
  Sex: Female
  Weight: 62.1 kg

DRUGS (7)
  1. LYRICA [Suspect]
     Indication: FIBROMYALGIA
     Route: 048
     Dates: start: 20080409
  2. ZOLOFT [Concomitant]
     Dates: start: 20080409
  3. ALLEGRA D 24 HOUR [Concomitant]
     Dates: start: 20071129
  4. IBUPROFEN [Concomitant]
     Dates: start: 20071129
  5. AMBIEN [Concomitant]
     Dates: start: 20080222
  6. LORTAB [Concomitant]
     Dates: start: 20080222
  7. DETROL LA [Concomitant]
     Dates: start: 20080222

REACTIONS (4)
  - GINGIVAL BLISTER [None]
  - OROPHARYNGEAL BLISTERING [None]
  - RASH [None]
  - TONGUE BLISTERING [None]
